FAERS Safety Report 8133951-5 (Version None)
Quarter: 2012Q1

REPORT INFORMATION
  Report Type: 
  Country: None (occurrence: None)
  Receive Date: 20120213
  Receipt Date: 20120203
  Transmission Date: 20120608
  Serious: No
  Sender: FDA-Public Use
  Company Number: JP-ASTRAZENECA-2012SE03100

PATIENT
  Age: 69 Year
  Sex: Female
  Weight: 58 kg

DRUGS (11)
  1. PROMACTA [Concomitant]
     Indication: DYSGEUSIA
     Route: 048
     Dates: start: 20080509
  2. METHYCOBAL [Concomitant]
     Indication: BACK PAIN
     Route: 048
     Dates: start: 20090522
  3. FARESTON [Concomitant]
     Indication: METASTASES TO BONE
     Route: 048
     Dates: start: 20101001, end: 20111213
  4. TS-1 [Concomitant]
     Dosage: DOSE UNKNOWN
     Route: 048
  5. ZOMETA [Concomitant]
     Indication: METASTASES TO BONE
     Route: 042
     Dates: start: 20110817
  6. LEVOTHYROXINE SODIUM [Concomitant]
     Indication: HYPOTHYROIDISM
     Route: 048
     Dates: start: 20101215
  7. DOCETAXEL [Concomitant]
  8. MEDROXYPROGESTERONE ACETATE [Concomitant]
     Indication: BREAST CANCER RECURRENT
     Route: 048
     Dates: start: 20101001, end: 20111213
  9. FASLODEX [Suspect]
     Indication: BREAST CANCER
     Route: 030
     Dates: start: 20111227
  10. XELODA [Concomitant]
     Dosage: DOSE UNKNOWN
     Route: 048
  11. CYCLOPHOSPHAMIDE [Concomitant]
     Dosage: DOSE UNKNOWN
     Route: 048

REACTIONS (1)
  - GENITAL HAEMORRHAGE [None]
